FAERS Safety Report 18618877 (Version 4)
Quarter: 2021Q1

REPORT INFORMATION
  Report Type: Report from Study
  Country: US (occurrence: US)
  Receive Date: 20201215
  Receipt Date: 20210302
  Transmission Date: 20210419
  Serious: Yes (Other)
  Sender: FDA-Public Use
  Company Number: NVSC2020US326920

PATIENT
  Age: 80 Year
  Sex: Male

DRUGS (3)
  1. SPIRONOLACTONE. [Suspect]
     Active Substance: SPIRONOLACTONE
     Indication: RENAL IMPAIRMENT
     Dosage: 0.5 DF, QD
     Route: 065
     Dates: start: 202011, end: 202101
  2. ENTRESTO [Suspect]
     Active Substance: SACUBITRIL\VALSARTAN
     Indication: CARDIAC FAILURE
     Dosage: 24.26 MG, BID ((24/26MG)
     Route: 048
     Dates: start: 20201005
  3. SPIRONOLACTONE. [Suspect]
     Active Substance: SPIRONOLACTONE
     Indication: LIVER FUNCTION TEST INCREASED

REACTIONS (7)
  - Renal impairment [Unknown]
  - Rash [Unknown]
  - Peripheral swelling [Unknown]
  - Fall [Unknown]
  - Prostatic specific antigen increased [Unknown]
  - Stress fracture [Unknown]
  - Liver function test increased [Unknown]

NARRATIVE: CASE EVENT DATE: 20201118
